FAERS Safety Report 21043463 (Version 1)
Quarter: 2022Q3

REPORT INFORMATION
  Report Type: Spontaneous
  Country: US (occurrence: US)
  Receive Date: 20220705
  Receipt Date: 20220705
  Transmission Date: 20221027
  Serious: No
  Sender: FDA-Public Use
  Company Number: US-GLAXOSMITHKLINE-USCH2022AMR022732

PATIENT
  Age: 75 Year

DRUGS (1)
  1. ADVIL [Suspect]
     Active Substance: IBUPROFEN
     Indication: Pain management
     Dosage: UNK
     Dates: start: 202204

REACTIONS (1)
  - Antibody test abnormal [Unknown]

NARRATIVE: CASE EVENT DATE: 20220501
